FAERS Safety Report 17158396 (Version 4)
Quarter: 2020Q2

REPORT INFORMATION
  Report Type: Spontaneous
  Country: IT (occurrence: IT)
  Receive Date: 20191216
  Receipt Date: 20200527
  Transmission Date: 20200713
  Serious: Yes (Hospitalization)
  Sender: FDA-Public Use
  Company Number: IT-BRACCO-2019IT06599

PATIENT
  Age: 66 Year
  Sex: Male

DRUGS (3)
  1. GADOTERIC ACID [Concomitant]
     Active Substance: GADOTERATE MEGLUMINE
     Dosage: DILUTED 1:200 IN PHYSIOLOGICAL SALINE
     Route: 014
     Dates: start: 20191024, end: 20191024
  2. PHYSIOLOGICAL SALINE SOLUTION [Concomitant]
     Active Substance: SODIUM CHLORIDE
     Dosage: GADOTERIC ACID DILUTED 1:200 IN PHYSIOLOGICAL SALINE
     Route: 014
     Dates: start: 20191024, end: 20191024
  3. IOPAMIRO [Suspect]
     Active Substance: IOPAMIDOL
     Indication: ARTHROGRAM
     Dosage: 3 ML, SINGLE
     Route: 014
     Dates: start: 20191024, end: 20191024

REACTIONS (3)
  - Product deposit [Unknown]
  - Off label use [Unknown]
  - Arthritis [Unknown]

NARRATIVE: CASE EVENT DATE: 20191024
